FAERS Safety Report 20940509 (Version 3)
Quarter: 2022Q3

REPORT INFORMATION
  Report Type: Spontaneous
  Country: US (occurrence: US)
  Receive Date: 20220609
  Receipt Date: 20220823
  Transmission Date: 20221027
  Serious: No
  Sender: FDA-Public Use
  Company Number: US-PFIZER INC-202200809289

PATIENT
  Age: 66 Year
  Sex: Female
  Weight: 67.12 kg

DRUGS (13)
  1. PAXLOVID [Suspect]
     Active Substance: NIRMATRELVIR\RITONAVIR
     Indication: COVID-19 treatment
     Dosage: 4 DF, 1X/DAY (2 NIRMATRELVIR 150 MG QD FOR 10 DAYS) AND (2 RITONAVIR 100MG  QD FOR 10 DAYS)
     Route: 048
     Dates: start: 20220526, end: 20220606
  2. UBRELVY [Concomitant]
     Active Substance: UBROGEPANT
     Indication: Migraine
     Dosage: UNK UNK, AS NEEDED (1-2 TABLETS PRN)
     Route: 048
  3. CHLORTHALIDONE [Concomitant]
     Active Substance: CHLORTHALIDONE
     Dosage: 25 MG, 1X/DAY
     Route: 048
  4. ACYCLOVIR [Concomitant]
     Active Substance: ACYCLOVIR
     Indication: Oral herpes
     Dosage: 1000 MG, QD FOR FIVE DAYS AS NEEDED
     Route: 048
  5. IVERMECTIN [Concomitant]
     Active Substance: IVERMECTIN
     Dosage: UNK, APPLY TO AFFECTED AREA AS NEEDED
     Route: 061
  6. MAGNESIUM OXIDE [Concomitant]
     Active Substance: MAGNESIUM OXIDE
     Indication: Migraine
     Dosage: 400 MG
     Route: 048
  7. MUPIROCIN [Concomitant]
     Active Substance: MUPIROCIN
     Dosage: UNK, APPLY TO AFFECTED AREA Q.8 HOURS UNTIL LESION HEALED AS NEEDED
     Route: 061
     Dates: start: 20200924
  8. DENAVIR [Concomitant]
     Active Substance: PENCICLOVIR
     Dosage: UNK, AS NEEDED
     Route: 061
  9. ASPIRIN [Concomitant]
     Active Substance: ASPIRIN
     Dosage: 81 MG, 1X/DAY
     Route: 048
  10. VITAMIN B2 [Concomitant]
     Active Substance: RIBOFLAVIN
     Indication: Migraine
     Dosage: 400 MG
     Route: 048
  11. VITAMIN B12 [Concomitant]
     Active Substance: CYANOCOBALAMIN
     Dosage: 5000 UG, 1X/DAY
     Route: 048
  12. TYLENOL EXTRA STRENGTH [Concomitant]
     Active Substance: ACETAMINOPHEN
     Indication: Back pain
     Dosage: 1000 MG, AS NEEDED (2 TABS PO Q 6 HOURS, PRN)
     Route: 048
  13. POLYETHYLENE GLYCOL\PROPYLENE GLYCOL [Concomitant]
     Active Substance: POLYETHYLENE GLYCOL\PROPYLENE GLYCOL
     Dosage: UNK, AS NEEDED (1-6 GGT PER EYE PRN)

REACTIONS (6)
  - COVID-19 [Recovered/Resolved]
  - Disease recurrence [Recovered/Resolved]
  - Off label use [Unknown]
  - Off label use [Unknown]
  - Product use issue [Unknown]
  - Contraindicated product administered [Unknown]

NARRATIVE: CASE EVENT DATE: 20220526
